FAERS Safety Report 6091001-9 (Version None)
Quarter: 2009Q1

REPORT INFORMATION
  Report Type: 
  Country: None (occurrence: None)
  Receive Date: 20090218
  Receipt Date: 20090218
  Transmission Date: 20090719
  Serious: No
  Sender: FDA-Public Use
  Company Number: None

PATIENT
  Age: 80 Year
  Sex: Male
  Weight: 76.2043 kg

DRUGS (1)
  1. AMIODARONE HCL [Suspect]

REACTIONS (4)
  - ACTIVITIES OF DAILY LIVING IMPAIRED [None]
  - DRUG HYPERSENSITIVITY [None]
  - DYSPNOEA [None]
  - PANIC ATTACK [None]
